FAERS Safety Report 9411739 (Version 3)
Quarter: 2014Q1

REPORT INFORMATION
  Report Type: Spontaneous
  Country: US (occurrence: None)
  Receive Date: 20120907
  Receipt Date: 20130815
  Transmission Date: 20141002
  Serious: Yes (Other)
  Sender: FDA-Public Use
  Company Number: ADR-2012-01132

PATIENT
  Sex: Female

DRUGS (2)
  1. BACLOFEN INTRATHECAL (BACLOFEN INJECTION) [Suspect]
     Indication: MUSCLE SPASTICITY
  2. BACLOFEN INTRATHECAL (BACLOFEN INJECTION) [Suspect]

REACTIONS (5)
  - Decubitus ulcer [None]
  - Catheter site erosion [None]
  - Muscle contracture [None]
  - Cachexia [None]
  - Implant site erosion [None]
